FAERS Safety Report 10441081 (Version 1)
Quarter: 2014Q3

REPORT INFORMATION
  Report Type: Spontaneous
  Country: GB (occurrence: GB)
  Receive Date: 20140909
  Receipt Date: 20140909
  Transmission Date: 20150326
  Serious: Yes (Other)
  Sender: FDA-Public Use
  Company Number: GB-CIPLA LTD.-2014GB01241

PATIENT

DRUGS (3)
  1. LAMOTRIGINE. [Suspect]
     Active Substance: LAMOTRIGINE
     Indication: AMNESIA
     Dosage: 25 MG, UNK
  2. LEVETIRACETAM. [Concomitant]
     Active Substance: LEVETIRACETAM
     Indication: AMNESIA
     Dosage: 1500 MG, BID
  3. DONEPEZIL [Concomitant]
     Active Substance: DONEPEZIL
     Indication: AMNESIA
     Dosage: 10 MG, QD

REACTIONS (1)
  - Abnormal behaviour [Recovering/Resolving]
